FAERS Safety Report 24945756 (Version 1)
Quarter: 2025Q1

REPORT INFORMATION
  Report Type: Spontaneous
  Country: US (occurrence: US)
  Receive Date: 20250209
  Receipt Date: 20250209
  Transmission Date: 20250409
  Serious: No
  Sender: JOHNSON AND JOHNSON
  Company Number: US-JNJFOC-20250140083

PATIENT
  Age: 63 Year
  Sex: Female

DRUGS (11)
  1. SIMPONI [Suspect]
     Active Substance: GOLIMUMAB
     Indication: Ankylosing spondylitis
     Route: 058
     Dates: start: 20230706
  2. FOLIC ACID   TAB 1MG [Concomitant]
     Indication: Product used for unknown indication
  3. DICLOFENAC   GEL 3% [Concomitant]
     Indication: Product used for unknown indication
  4. MONTELUKAST  TAB 10MG [Concomitant]
     Indication: Product used for unknown indication
  5. LISINOPRIL   TAB 5MG [Concomitant]
     Indication: Product used for unknown indication
  6. PREGABALIN   CAP 100MG [Concomitant]
     Indication: Product used for unknown indication
  7. OXYBUTYNIN   TAB 5MG ER [Concomitant]
     Indication: Product used for unknown indication
  8. PREDNISOLONE SUS 1% OP [Concomitant]
     Indication: Product used for unknown indication
  9. RESTASIS     EMU 0.05% OP [Concomitant]
     Indication: Product used for unknown indication
  10. DESVENLAFAX  TAB 100MG ER [Concomitant]
     Indication: Product used for unknown indication
  11. OMEPRAZOLE   CAP 20MG [Concomitant]
     Indication: Product used for unknown indication

REACTIONS (4)
  - Product dose omission issue [Unknown]
  - Musculoskeletal stiffness [Not Recovered/Not Resolved]
  - Off label use [Unknown]
  - Chills [Not Recovered/Not Resolved]
